FAERS Safety Report 8172793-1 (Version None)
Quarter: 2012Q1

REPORT INFORMATION
  Report Type: 
  Country: None (occurrence: None)
  Receive Date: 20120223
  Receipt Date: 20120210
  Transmission Date: 20120608
  Serious: Yes (Other)
  Sender: FDA-Public Use
  Company Number: NSR_00497_2012

PATIENT
  Age: 49 Year
  Sex: Female
  Weight: 70 kg

DRUGS (13)
  1. TRAMADOL HCL [Suspect]
     Indication: PAIN
     Dosage: (INTRAVENOUS (NOT OTHERWISE SPECIFIED))
     Route: 042
  2. PROPOFOL [Concomitant]
  3. SEVOFLURANE [Concomitant]
  4. SUXAMETHONIUM [Concomitant]
  5. MIDAZOLAM [Concomitant]
  6. METOCLOPRAMIDE [Suspect]
     Indication: PRODUCT USED FOR UNKNOWN INDICATION
     Dosage: (DF [10 MG PRE-OPERATIVELY] INTRAVENOUS (NOT OTHERWISE SPECIFIED))
     Route: 042
  7. ROCURONIUM BROMIDE [Concomitant]
  8. ATROPINE [Concomitant]
  9. ACETAMINOPHEN [Concomitant]
  10. FENTANYL [Suspect]
     Indication: ANAESTHESIA
     Dosage: ([TOTAL OF 250 UG GIVEN, WITH THE LAST BOLUS 60 MIN BEFORE THE END OF THE 100-MIN SURGERY])
     Route: 040
  11. PARECOXIB SODIUM [Concomitant]
  12. RANITIDINE [Concomitant]
  13. NEOSTIGMINE [Concomitant]

REACTIONS (5)
  - PAIN [None]
  - DEPRESSED LEVEL OF CONSCIOUSNESS [None]
  - APNOEA [None]
  - MYDRIASIS [None]
  - ANTICHOLINERGIC SYNDROME [None]
